FAERS Safety Report 12053458 (Version 1)
Quarter: 2016Q1

REPORT INFORMATION
  Report Type: Report from Study
  Country: US (occurrence: US)
  Receive Date: 20160209
  Receipt Date: 20160209
  Transmission Date: 20160526
  Serious: Yes (Other)
  Sender: FDA-Public Use
  Company Number: US-ABBVIE-15P-163-1455390-00

PATIENT
  Age: 61 Year
  Sex: Female

DRUGS (1)
  1. HUMIRA [Suspect]
     Active Substance: ADALIMUMAB
     Indication: CROHN^S DISEASE
     Route: 065
     Dates: start: 20120701

REACTIONS (6)
  - Subcutaneous abscess [Recovering/Resolving]
  - Skin lesion [Recovering/Resolving]
  - Foot fracture [Unknown]
  - Fall [Unknown]
  - Latent tuberculosis [Recovering/Resolving]
  - Liver function test abnormal [Unknown]

NARRATIVE: CASE EVENT DATE: 201503
